FAERS Safety Report 5713528-9 (Version None)
Quarter: 2008Q2

REPORT INFORMATION
  Report Type: 
  Country: None (occurrence: None)
  Receive Date: 20080422
  Receipt Date: 20080414
  Transmission Date: 20081010
  Serious: Yes (Hospitalization, Other)
  Sender: FDA-Public Use
  Company Number: US-ELI_LILLY_AND_COMPANY-US200803001641

PATIENT
  Sex: Male

DRUGS (1)
  1. HUMALOG [Suspect]
     Dates: start: 19980101

REACTIONS (11)
  - CARDIAC DISORDER [None]
  - CARDIOVASCULAR DISORDER [None]
  - CORONARY ARTERIAL STENT INSERTION [None]
  - DEMENTIA [None]
  - HYPERTENSION [None]
  - MYOCARDIAL INFARCTION [None]
  - PULMONARY OEDEMA [None]
  - RENAL ARTERY STENT PLACEMENT [None]
  - RENAL FAILURE [None]
  - RETINOPATHY [None]
  - STENT PLACEMENT [None]
